FAERS Safety Report 17876475 (Version 3)
Quarter: 2020Q3

REPORT INFORMATION
  Report Type: Spontaneous
  Country: IT (occurrence: IT)
  Receive Date: 20200609
  Receipt Date: 20200701
  Transmission Date: 20201103
  Serious: Yes (Life-Threatening, Other)
  Sender: FDA-Public Use
  Company Number: IT-PFIZER INC-2020222810

PATIENT
  Age: 49 Year
  Sex: Male
  Weight: 50 kg

DRUGS (3)
  1. DELTACORTENE [Concomitant]
     Active Substance: PREDNISONE
     Dosage: 12.5 MG
  2. NPLATE [Concomitant]
     Active Substance: ROMIPLOSTIM
     Dosage: UNK
  3. VFEND [Suspect]
     Active Substance: VORICONAZOLE
     Indication: PNEUMONIA FUNGAL
     Dosage: 200 MG, 1X/DAY
     Route: 048
     Dates: start: 20200410, end: 20200518

REACTIONS (13)
  - Multiple organ dysfunction syndrome [Recovering/Resolving]
  - Jaundice [Unknown]
  - Hepatitis [Recovering/Resolving]
  - Transaminases increased [Recovering/Resolving]
  - Hepatic encephalopathy [Unknown]
  - Pruritus [Unknown]
  - Abdominal distension [Unknown]
  - Nausea [Unknown]
  - Cerebral ischaemia [Unknown]
  - Off label use [Unknown]
  - Hallucination [Recovering/Resolving]
  - Pyrexia [Unknown]
  - Vomiting [Unknown]

NARRATIVE: CASE EVENT DATE: 20200410
